FAERS Safety Report 9641511 (Version 1)
Quarter: 2013Q4

REPORT INFORMATION
  Report Type: Spontaneous
  Country: US (occurrence: US)
  Receive Date: 20131023
  Receipt Date: 20131023
  Transmission Date: 20140711
  Serious: No
  Sender: FDA-Public Use
  Company Number: US-BAYER-2013-126435

PATIENT
  Age: 60 Year
  Sex: Female

DRUGS (2)
  1. GADAVIST [Suspect]
     Indication: NUCLEAR MAGNETIC RESONANCE IMAGING
     Dosage: 5 ML, ONCE
     Route: 042
     Dates: start: 20131015, end: 20131015
  2. GADAVIST [Suspect]
     Indication: CAROTID ARTERY ANEURYSM

REACTIONS (2)
  - Skin warm [None]
  - Erythema [None]
